FAERS Safety Report 7527737-X (Version None)
Quarter: 2011Q2

REPORT INFORMATION
  Report Type: 
  Country: None (occurrence: None)
  Receive Date: 20110607
  Receipt Date: 20110524
  Transmission Date: 20111010
  Serious: Yes (Hospitalization)
  Sender: FDA-Public Use
  Company Number: CA-JNJFOC-20110512077

PATIENT
  Sex: Male
  Weight: 99 kg

DRUGS (14)
  1. METOPROLOL TARTRATE [Concomitant]
  2. CLONAZEPAM [Concomitant]
  3. RABEPRAZOLE SODIUM [Concomitant]
  4. DOMPERIDONE [Concomitant]
  5. CODEINE SULFATE [Concomitant]
  6. LOPERAMIDE [Concomitant]
  7. MIRTAZAPINE [Concomitant]
     Dosage: 30 MG + 35 MG AT NIGHT
  8. LOMOTIL [Concomitant]
  9. CLONAZEPAM [Concomitant]
  10. EFFEXOR [Concomitant]
     Dosage: 150 MG + 15 MG IN THE MORNING
  11. OLANZAPINE [Concomitant]
  12. REMICADE [Suspect]
     Indication: CROHN'S DISEASE
     Route: 042
     Dates: start: 20041001, end: 20110307
  13. TYLENOL W/ CODEINE [Concomitant]
  14. DETROL LA [Concomitant]

REACTIONS (2)
  - LUNG NEOPLASM MALIGNANT [None]
  - HEPATIC NEOPLASM MALIGNANT [None]
